FAERS Safety Report 5580023-X (Version None)
Quarter: 2007Q4

REPORT INFORMATION
  Report Type: 
  Country: None (occurrence: None)
  Receive Date: 20071228
  Receipt Date: 20071218
  Transmission Date: 20080405
  Serious: Yes (Hospitalization)
  Sender: FDA-Public Use
  Company Number: 028-C5013-07120984

PATIENT
  Age: 60 Year
  Sex: Male

DRUGS (6)
  1. CC-5013 (LENALIDOMIDE) (15 MILLIGRAM, CAPSULES) [Suspect]
     Indication: MULTIPLE MYELOMA
     Dosage: 15 MG, DAILY X 21 DAYS OF 28 DAY
     Dates: start: 20071023
  2. DEXAMETHASONE [Suspect]
     Indication: MULTIPLE MYELOMA
     Dosage: 15 MG, DAILY X 21 DAY OF 28 DAY
     Dates: start: 20071023
  3. COUMADIN [Concomitant]
  4. SODIUM BICARBONATE (SODIUM BICARBONATE) (TABLETS) [Concomitant]
  5. ZOPICLONE (ZOPICLONE) [Concomitant]
  6. METOPROLOL TARTRATE [Concomitant]

REACTIONS (9)
  - ATRIAL FIBRILLATION [None]
  - CONFUSIONAL STATE [None]
  - DEHYDRATION [None]
  - LISTERIA SEPSIS [None]
  - LOBAR PNEUMONIA [None]
  - NEUTROPENIA [None]
  - RENAL FAILURE ACUTE [None]
  - RHABDOMYOLYSIS [None]
  - THROMBOCYTOPENIA [None]
